FAERS Safety Report 7527614-4 (Version None)
Quarter: 2011Q2

REPORT INFORMATION
  Report Type: 
  Country: None (occurrence: None)
  Receive Date: 20110607
  Receipt Date: 20110604
  Transmission Date: 20111010
  Serious: No
  Sender: FDA-Public Use
  Company Number: US-PFIZER INC-2011122026

PATIENT
  Sex: Female

DRUGS (1)
  1. EFFEXOR XR [Suspect]
     Dosage: 150 MG, UNK
     Route: 048

REACTIONS (3)
  - MALAISE [None]
  - INCORRECT DOSE ADMINISTERED [None]
  - DEPRESSED MOOD [None]
